FAERS Safety Report 8941710 (Version 3)
Quarter: 2013Q1

REPORT INFORMATION
  Report Type: Spontaneous
  Country: US (occurrence: US)
  Receive Date: 20121203
  Receipt Date: 20130128
  Transmission Date: 20140127
  Serious: Yes (Other)
  Sender: FDA-Public Use
  Company Number: PHEH2012US023578

PATIENT
  Sex: Female

DRUGS (5)
  1. AFINITOR [Suspect]
     Indication: RENAL CANCER
     Dosage: 10 MG, DAILY
     Route: 048
     Dates: start: 20121027, end: 20121128
  2. AROMASIN [Concomitant]
     Indication: RENAL CANCER
  3. BENADRYL [Concomitant]
  4. VITAMIN D [Concomitant]
  5. DETROL LA [Concomitant]

REACTIONS (3)
  - Lung disorder [Not Recovered/Not Resolved]
  - Malignant neoplasm progression [Unknown]
  - Drug ineffective [Unknown]
